FAERS Safety Report 9729110 (Version 1)
Quarter: 2013Q4

REPORT INFORMATION
  Report Type: Spontaneous
  Country: US (occurrence: US)
  Receive Date: 20131204
  Receipt Date: 20131204
  Transmission Date: 20140711
  Serious: Yes (Hospitalization)
  Sender: FDA-Public Use
  Company Number: PHHY2013US137111

PATIENT
  Age: 49 Year
  Sex: Male

DRUGS (2)
  1. GENTAMICIN [Suspect]
     Indication: PROPHYLAXIS
     Dosage: 150 MG, Q8H
     Route: 042
  2. CLINDAMYCIN [Suspect]
     Indication: PROPHYLAXIS
     Dosage: 600 MG, Q6H
     Route: 042

REACTIONS (8)
  - Megacolon [Recovered/Resolved]
  - Abdominal distension [Recovered/Resolved]
  - Gastrointestinal sounds abnormal [Recovered/Resolved]
  - Metabolic acidosis [Recovered/Resolved]
  - Oliguria [Recovered/Resolved]
  - Hypoxia [Recovered/Resolved]
  - Renal failure [Recovered/Resolved]
  - Pseudomembranous colitis [Recovered/Resolved]
